FAERS Safety Report 24339231 (Version 3)
Quarter: 2024Q4

REPORT INFORMATION
  Report Type: Spontaneous
  Country: JP (occurrence: JP)
  Receive Date: 20240919
  Receipt Date: 20241001
  Transmission Date: 20250114
  Serious: Yes (Life-Threatening, Hospitalization, Disabling, Other)
  Sender: PFIZER
  Company Number: JP-PFIZER INC-PV202400121391

PATIENT
  Age: 62 Year
  Sex: Female

DRUGS (2)
  1. METHOTREXATE SODIUM [Suspect]
     Active Substance: METHOTREXATE SODIUM
     Indication: Rheumatoid arthritis
     Dosage: 6 MG
  2. METHOTREXATE SODIUM [Suspect]
     Active Substance: METHOTREXATE SODIUM
     Indication: Sjogren^s syndrome

REACTIONS (6)
  - Diffuse large B-cell lymphoma [Recovered/Resolved]
  - Eye haemorrhage [Recovered/Resolved]
  - Herpes simplex [Recovered/Resolved]
  - Herpes ophthalmic [Recovered/Resolved]
  - Hypopyon [Recovered/Resolved]
  - Ocular lymphoma [Recovered/Resolved]
